FAERS Safety Report 4640316-7 (Version None)
Quarter: 2005Q2

REPORT INFORMATION
  Report Type: 
  Country: None (occurrence: None)
  Receive Date: 20050420
  Receipt Date: 20041020
  Transmission Date: 20051028
  Serious: No
  Sender: FDA-Public Use
  Company Number: US-GLAXOSMITHKLINE-A0530626A

PATIENT
  Age: 65 Year
  Sex: Female

DRUGS (8)
  1. ESKALITH [Suspect]
     Indication: DEPRESSION
     Route: 048
  2. WELLBUTRIN [Suspect]
     Indication: DEPRESSION
     Dosage: 300MG PER DAY
     Route: 048
  3. WELLBUTRIN [Suspect]
     Dosage: 100MG FOUR TIMES PER DAY
     Route: 048
  4. HUMIBID [Concomitant]
  5. ROBAXIN [Concomitant]
  6. ULTRAM [Concomitant]
  7. NEURONTIN [Concomitant]
  8. VALIUM [Concomitant]

REACTIONS (2)
  - ALOPECIA [None]
  - HYPOTRICHOSIS [None]
